FAERS Safety Report 24091171 (Version 2)
Quarter: 2024Q3

REPORT INFORMATION
  Report Type: Report from Study
  Country: US (occurrence: US)
  Receive Date: 20240715
  Receipt Date: 20240829
  Transmission Date: 20241016
  Serious: Yes (Hospitalization, Other)
  Sender: UCB
  Company Number: US-UCBSA-2024030476

PATIENT
  Sex: Male
  Weight: 79.37 kg

DRUGS (4)
  1. BRIVARACETAM [Suspect]
     Active Substance: BRIVARACETAM
     Indication: Seizure
     Dosage: 50 MILLIGRAM, 2X/DAY (BID)
     Route: 048
     Dates: start: 2023
  2. LAMOTRIGINE [Concomitant]
     Active Substance: LAMOTRIGINE
     Indication: Seizure
     Dosage: 150 MILLIGRAM, 2X/DAY (BID)
  3. LAMOTRIGINE [Concomitant]
     Active Substance: LAMOTRIGINE
     Dosage: 150 MILLIGRAM, 3X/DAY (TID)
  4. LAMOTRIGINE [Concomitant]
     Active Substance: LAMOTRIGINE
     Dosage: 25 MILLIGRAM, 2X/DAY (BID)

REACTIONS (5)
  - Biopsy kidney [Unknown]
  - Renal failure [Unknown]
  - Blood pressure abnormal [Recovering/Resolving]
  - Seizure [Unknown]
  - Weight increased [Unknown]

NARRATIVE: CASE EVENT DATE: 20230101
